FAERS Safety Report 25224362 (Version 1)
Quarter: 2025Q2

REPORT INFORMATION
  Report Type: Spontaneous
  Country: US (occurrence: None)
  Receive Date: 20250421
  Receipt Date: 20250421
  Transmission Date: 20250717
  Serious: Yes (Life-Threatening, Disabling, Other)
  Sender: FDA-CTU
  Company Number: None

PATIENT
  Age: 47 Year
  Sex: Male
  Weight: 72 kg

DRUGS (3)
  1. HERBALS\MITRAGYNINE [Suspect]
     Active Substance: HERBALS\MITRAGYNINE
     Indication: Dependence
     Dates: start: 20210101, end: 20250419
  2. LAMICTAL [Concomitant]
     Active Substance: LAMOTRIGINE
  3. VIIBRYD [Concomitant]
     Active Substance: VILAZODONE HYDROCHLORIDE

REACTIONS (5)
  - Liver disorder [None]
  - Drug dependence [None]
  - Partner stress [None]
  - Drug abuse [None]
  - Malaise [None]

NARRATIVE: CASE EVENT DATE: 20250419
